FAERS Safety Report 15344772 (Version 2)
Quarter: 2018Q3

REPORT INFORMATION
  Report Type: Spontaneous
  Country: FR (occurrence: FR)
  Receive Date: 20180903
  Receipt Date: 20180903
  Transmission Date: 20181010
  Serious: Yes (Other)
  Sender: FDA-Public Use
  Company Number: PHHY2018FR086764

PATIENT
  Age: 45 Year
  Sex: Female

DRUGS (6)
  1. ETANERCEPT [Interacting]
     Active Substance: ETANERCEPT
     Indication: PSORIASIS
     Dosage: DOSAGE FORM: UNKNOWN
     Route: 065
  2. INFLIXIMAB [Suspect]
     Active Substance: INFLIXIMAB
     Indication: PSORIASIS
     Dosage: DOSAGE FORM: LYOPHILIZED POWDER
     Route: 042
  3. METHOTREXATE. [Suspect]
     Active Substance: METHOTREXATE
     Indication: PSORIASIS
     Dosage: DOSAGE FORM: UNKNOWN
     Route: 065
  4. ADALIMUMAB [Interacting]
     Active Substance: ADALIMUMAB
     Indication: PSORIASIS
     Dosage: DOSAGE FORM: UNKNOWN
     Route: 065
  5. SECUKINUMAB. [Interacting]
     Active Substance: SECUKINUMAB
     Dosage: DOSAGE FORM: UNKNOWN
     Route: 065
  6. SECUKINUMAB. [Interacting]
     Active Substance: SECUKINUMAB
     Indication: PSORIASIS

REACTIONS (4)
  - Unintended pregnancy [Recovered/Resolved]
  - Maternal exposure before pregnancy [Recovered/Resolved]
  - Abortion spontaneous [Unknown]
  - Drug-device interaction [Unknown]
